FAERS Safety Report 17981406 (Version 1)
Quarter: 2020Q3

REPORT INFORMATION
  Report Type: Report from Study
  Country: None (occurrence: CO)
  Receive Date: 20200706
  Receipt Date: 20200706
  Transmission Date: 20201103
  Serious: Yes (Hospitalization)
  Sender: FDA-Public Use
  Company Number: CO-ABBVIE-20K-036-3470830-00

PATIENT
  Age: 42 Year
  Sex: Male
  Weight: 64 kg

DRUGS (2)
  1. ZEMPLAR [Suspect]
     Active Substance: PARICALCITOL
     Indication: CHRONIC KIDNEY DISEASE
  2. ZEMPLAR [Suspect]
     Active Substance: PARICALCITOL
     Indication: HYPERPARATHYROIDISM SECONDARY
     Dosage: POST DIALYSIS
     Route: 042
     Dates: start: 20171031, end: 20200626

REACTIONS (2)
  - Blood potassium increased [Recovering/Resolving]
  - Adverse food reaction [Recovering/Resolving]

NARRATIVE: CASE EVENT DATE: 20200629
